FAERS Safety Report 10675762 (Version 3)
Quarter: 2015Q1

REPORT INFORMATION
  Report Type: Report from Study
  Country: US (occurrence: US)
  Receive Date: 20141225
  Receipt Date: 20150204
  Transmission Date: 20150720
  Serious: Yes (Other)
  Sender: FDA-Public Use
  Company Number: US-ROCHE-1481800

PATIENT
  Age: 85 Year
  Sex: Male

DRUGS (19)
  1. BABY ASPIRIN [Concomitant]
     Active Substance: ASPIRIN
  2. SENNOSIDES. [Concomitant]
     Active Substance: SENNOSIDES
     Route: 065
  3. RANOLAZINE HCL [Concomitant]
     Active Substance: RANOLAZINE HYDROCHLORIDE
     Route: 065
  4. LOSARTAN [Concomitant]
     Active Substance: LOSARTAN
  5. MYCOPHENOLATE [Concomitant]
     Active Substance: MYCOPHENOLIC ACID
     Route: 065
  6. CELLCEPT [Suspect]
     Active Substance: MYCOPHENOLATE MOFETIL\MYCOPHENOLATE MOFETIL HYDROCHLORIDE
     Indication: WAGNER^S DISEASE
     Route: 065
  7. VITAMIN D3 [Concomitant]
     Active Substance: CHOLECALCIFEROL
     Route: 065
  8. LIDOCAINE. [Concomitant]
     Active Substance: LIDOCAINE
  9. FENTANYL CITRATE. [Concomitant]
     Active Substance: FENTANYL CITRATE
     Route: 065
  10. LEVOTHYROXINE [Concomitant]
     Active Substance: LEVOTHYROXINE
  11. PANTOPRAZOLE [Concomitant]
     Active Substance: PANTOPRAZOLE SODIUM
  12. MYCOPHENOLATE MOFETIL. [Concomitant]
     Active Substance: MYCOPHENOLATE MOFETIL
     Route: 065
  13. MORPHINE [Concomitant]
     Active Substance: MORPHINE
     Dosage: ONE TIME DOSE
     Route: 065
  14. BISACODYL TABLETS [Concomitant]
     Route: 065
  15. PREDNISONE. [Concomitant]
     Active Substance: PREDNISONE
     Route: 065
  16. PROMETHAZINE [Concomitant]
     Active Substance: PROMETHAZINE\PROMETHAZINE HYDROCHLORIDE
  17. NITROGLYCERIN. [Concomitant]
     Active Substance: NITROGLYCERIN
  18. TEMAZEPAM. [Concomitant]
     Active Substance: TEMAZEPAM
  19. LORAZEPAM. [Concomitant]
     Active Substance: LORAZEPAM
     Route: 065

REACTIONS (11)
  - Insomnia [Recovering/Resolving]
  - Pain [Recovering/Resolving]
  - Myocardial infarction [Recovering/Resolving]
  - Klebsiella infection [Recovered/Resolved]
  - Pruritus [Recovering/Resolving]
  - Scratch [Recovering/Resolving]
  - Sepsis [Recovered/Resolved]
  - Urinary tract infection [Recovered/Resolved]
  - Fatigue [Recovering/Resolving]
  - Hypersensitivity [Unknown]
  - Urticaria [Recovering/Resolving]

NARRATIVE: CASE EVENT DATE: 20141215
